FAERS Safety Report 9762723 (Version 1)
Quarter: 2013Q4

REPORT INFORMATION
  Report Type: Spontaneous
  Country: GB (occurrence: None)
  Receive Date: 20131213
  Receipt Date: 20131213
  Transmission Date: 20140711
  Serious: Yes (Disabling)
  Sender: FDA-Public Use
  Company Number: AUR-APL-2013-10297

PATIENT
  Age: 24 Year
  Sex: Male
  Weight: 74 kg

DRUGS (1)
  1. QUETIAPINE ( QUETIAPINE) [Suspect]
     Indication: MENTAL DISORDER
     Route: 048
     Dates: start: 20110901, end: 20131001

REACTIONS (1)
  - Brain injury [None]
